FAERS Safety Report 9601182 (Version 2)
Quarter: 2014Q2

REPORT INFORMATION
  Report Type: Report from Study
  Country: JP (occurrence: JP)
  Receive Date: 20131005
  Receipt Date: 20140403
  Transmission Date: 20141212
  Serious: No
  Sender: FDA-Public Use
  Company Number: JP-ROCHE-1282848

PATIENT
  Age: 54 Year
  Sex: Male

DRUGS (17)
  1. METHOXY POLYETHYLENE GLYCOL-EPOETIN BETA [Suspect]
     Indication: NEPHROGENIC ANAEMIA
     Route: 058
     Dates: start: 20130307, end: 20130530
  2. METHOXY POLYETHYLENE GLYCOL-EPOETIN BETA [Suspect]
     Indication: NEPHROGENIC ANAEMIA
     Route: 042
     Dates: start: 20130704
  3. KAYEXALATE [Concomitant]
     Indication: DIABETIC NEPHROPATHY
     Route: 048
  4. SODIUM BICARBONATE [Concomitant]
     Indication: DIABETIC NEPHROPATHY
     Route: 048
  5. KREMEZIN [Concomitant]
     Indication: DIABETIC NEPHROPATHY
     Route: 048
  6. FEBURIC [Concomitant]
     Route: 048
  7. ONEALFA [Concomitant]
     Indication: DIABETIC NEPHROPATHY
     Route: 048
     Dates: end: 20130703
  8. ONEALFA [Concomitant]
     Indication: DIABETIC NEPHROPATHY
     Route: 048
     Dates: start: 20130704
  9. CALTAN [Concomitant]
     Indication: DIABETIC NEPHROPATHY
     Route: 048
     Dates: start: 20130307
  10. LASIX [Concomitant]
     Indication: DIABETIC NEPHROPATHY
     Route: 048
     Dates: end: 20130703
  11. LASIX [Concomitant]
     Indication: DIABETIC NEPHROPATHY
     Route: 048
     Dates: start: 20130704
  12. CO-DIO [Concomitant]
     Route: 048
  13. AMLODIN [Concomitant]
     Route: 048
  14. ARTIST [Concomitant]
     Route: 048
  15. NOVORAPID [Concomitant]
     Route: 058
  16. NOVORAPID [Concomitant]
     Route: 058
  17. LIPITOR [Concomitant]
     Route: 048

REACTIONS (2)
  - Transient ischaemic attack [Recovered/Resolved]
  - Cough [Recovered/Resolved]
